FAERS Safety Report 9643634 (Version 2)
Quarter: 2013Q4

REPORT INFORMATION
  Report Type: Spontaneous
  Country: TH (occurrence: TH)
  Receive Date: 20131024
  Receipt Date: 20131024
  Transmission Date: 20140711
  Serious: Yes (Hospitalization, Disabling, Other)
  Sender: FDA-Public Use
  Company Number: PHHY2013TH108737

PATIENT
  Age: 30 Year
  Sex: Female
  Weight: 42.3 kg

DRUGS (4)
  1. GILENYA [Suspect]
     Indication: MULTIPLE SCLEROSIS
     Dosage: 0.5 MG, DAILY
     Route: 048
     Dates: start: 20120308, end: 20130925
  2. GILENYA [Suspect]
     Dosage: 0.5 MG, DAILY
     Route: 048
     Dates: start: 20130930, end: 20131001
  3. GILENYA [Suspect]
     Dosage: 0.5 MG, DAILY
     Route: 048
     Dates: start: 20131005, end: 20131006
  4. GILENYA [Suspect]
     Dosage: 0.5 MG, DAILY
     Route: 048
     Dates: start: 20131007, end: 20131009

REACTIONS (12)
  - Herpes simplex [Recovered/Resolved]
  - White blood cell count decreased [Unknown]
  - Lymphocyte count decreased [Recovering/Resolving]
  - Neutrophil count decreased [Unknown]
  - Uhthoff^s phenomenon [Unknown]
  - Hypoaesthesia [Unknown]
  - Dyspnoea [Not Recovered/Not Resolved]
  - Mouth ulceration [Recovered/Resolved]
  - Vomiting [Unknown]
  - Influenza like illness [Recovered/Resolved]
  - Vision blurred [Recovering/Resolving]
  - Forced expiratory volume abnormal [Unknown]
